FAERS Safety Report 8063038-1 (Version None)
Quarter: 2012Q1

REPORT INFORMATION
  Report Type: 
  Country: None (occurrence: None)
  Receive Date: 20120123
  Receipt Date: 20120118
  Transmission Date: 20120608
  Serious: Yes (Other)
  Sender: FDA-Public Use
  Company Number: US-BAYER-2012-006055

PATIENT
  Age: 81 Year
  Sex: Female
  Weight: 73 kg

DRUGS (2)
  1. ALEVE (CAPLET) [Suspect]
     Indication: MYALGIA
     Dosage: 3 TABLETS
     Route: 048
     Dates: start: 20111218
  2. ALEVE (CAPLET) [Suspect]
     Dosage: 1 UNIT
     Route: 048
     Dates: end: 20111218

REACTIONS (1)
  - ANAEMIA [None]
